FAERS Safety Report 19614347 (Version 1)
Quarter: 2021Q3

REPORT INFORMATION
  Report Type: Spontaneous
  Country: US (occurrence: US)
  Receive Date: 20210727
  Receipt Date: 20210727
  Transmission Date: 20211014
  Serious: No
  Sender: FDA-Public Use
  Company Number: US-RECORDATI RARE DISEASES INC.-2020003790

PATIENT
  Sex: Female

DRUGS (2)
  1. TRANXENE [Suspect]
     Active Substance: CLORAZEPATE DIPOTASSIUM
     Indication: ANXIETY
     Dosage: UNK, UNK
     Route: 065
  2. TRANXENE [Suspect]
     Active Substance: CLORAZEPATE DIPOTASSIUM
     Dosage: UNK
     Route: 065

REACTIONS (18)
  - Gastrointestinal disorder [Unknown]
  - Frustration tolerance decreased [Unknown]
  - Loss of personal independence in daily activities [Unknown]
  - Eating disorder [Unknown]
  - Feeling abnormal [Unknown]
  - Crying [Unknown]
  - Stress [Unknown]
  - Emotional distress [Unknown]
  - Depression [Unknown]
  - Lethargy [Unknown]
  - Product administration interrupted [Unknown]
  - Weight decreased [Unknown]
  - Hypertension [Unknown]
  - Product availability issue [Unknown]
  - Wrong technique in product usage process [Unknown]
  - Malaise [Unknown]
  - Depressed mood [Unknown]
  - Insomnia [Unknown]
